FAERS Safety Report 6008531-8 (Version None)
Quarter: 2008Q4

REPORT INFORMATION
  Report Type: 
  Country: None (occurrence: None)
  Receive Date: 20081217
  Receipt Date: 20081209
  Transmission Date: 20090506
  Serious: Yes (Other)
  Sender: FDA-Public Use
  Company Number: US-WATSON-2008-07284

PATIENT
  Sex: Female

DRUGS (2)
  1. MEPIVACAINE HYDROCHLORIDE (WATSON LABORATORIES) [Suspect]
     Indication: LOCAL ANAESTHESIA
     Dosage: CONTINUOUS INFUSION UP TO 48 HRS OR MORE POST-SURGERY
     Route: 014
     Dates: start: 20061101
  2. ON-Q PAINBUSTER PAIN PUMP [Suspect]
     Indication: LOCAL ANAESTHESIA
     Dosage: CONTINUOUS INFUSION UP TO 48 HRS OR MORE POST-SURGERY
     Route: 014
     Dates: start: 20061101

REACTIONS (2)
  - ARTHROPATHY [None]
  - CHONDROLYSIS [None]
